FAERS Safety Report 9011877 (Version 1)
Quarter: 2013Q1

REPORT INFORMATION
  Report Type: Spontaneous
  Country: GR (occurrence: GR)
  Receive Date: 20130114
  Receipt Date: 20130114
  Transmission Date: 20140127
  Serious: Yes (Hospitalization)
  Sender: FDA-Public Use
  Company Number: GR-ABBOTT-13P-066-1029990-00

PATIENT
  Age: 67 Year
  Sex: Male

DRUGS (3)
  1. KLARICID [Suspect]
     Indication: TOOTHACHE
     Dosage: IN TOTAL, THE PATIENT TOOK 6 TABLETS
     Dates: end: 20121226
  2. LIPITOR [Concomitant]
     Indication: STENT PLACEMENT
  3. SALOSPIR [Concomitant]
     Indication: STENT PLACEMENT

REACTIONS (5)
  - Viral infection [Not Recovered/Not Resolved]
  - Polyneuropathy [Not Recovered/Not Resolved]
  - Muscular weakness [Recovering/Resolving]
  - Hypoaesthesia oral [Recovering/Resolving]
  - Ageusia [Recovering/Resolving]
